FAERS Safety Report 21300747 (Version 1)
Quarter: 2022Q3

REPORT INFORMATION
  Report Type: Report from Study
  Country: CR (occurrence: CR)
  Receive Date: 20220907
  Receipt Date: 20220907
  Transmission Date: 20221027
  Serious: Yes (Hospitalization)
  Sender: FDA-Public Use
  Company Number: CR-NOVARTISPH-NVSC2022CR200524

PATIENT
  Age: 72 Year
  Sex: Female

DRUGS (1)
  1. SACUBITRIL\VALSARTAN [Suspect]
     Active Substance: SACUBITRIL\VALSARTAN
     Indication: Cardiac failure
     Dosage: 1.5 DOSAGE FORM, BID (HALF A TABLET IN THE MORNING AND 1 AT NIGHT)
     Route: 048
     Dates: start: 202207

REACTIONS (3)
  - Pulmonary oedema [Not Recovered/Not Resolved]
  - Gait disturbance [Unknown]
  - Wrong technique in product usage process [Unknown]

NARRATIVE: CASE EVENT DATE: 20220701
